FAERS Safety Report 8569427-0 (Version None)
Quarter: 2012Q3

REPORT INFORMATION
  Report Type: 
  Country: None (occurrence: None)
  Receive Date: 20120803
  Receipt Date: 20120125
  Transmission Date: 20120928
  Serious: No
  Sender: FDA-Public Use
  Company Number: US-ABBOTT-12P-163-0898126-00

PATIENT
  Sex: Male
  Weight: 70.37 kg

DRUGS (3)
  1. IBUPROFEN [Concomitant]
     Indication: PRODUCT USED FOR UNKNOWN INDICATION
     Dosage: AT NIGHT
  2. NIASPAN [Suspect]
     Indication: BLOOD TRIGLYCERIDES
     Dates: start: 20120124
  3. NIASPAN [Suspect]
     Indication: BLOOD CHOLESTEROL

REACTIONS (1)
  - PARAESTHESIA [None]
